FAERS Safety Report 6282379-1 (Version None)
Quarter: 2009Q3

REPORT INFORMATION
  Report Type: 
  Country: None (occurrence: None)
  Receive Date: 20090721
  Receipt Date: 20090721
  Transmission Date: 20100115
  Serious: No
  Sender: FDA-Public Use
  Company Number: None

PATIENT
  Age: 37 Year
  Sex: Female
  Weight: 48.9885 kg

DRUGS (1)
  1. ZICAM ZICAM [Suspect]
     Indication: NASOPHARYNGITIS
     Dosage: 1 SQUIRT 1X DAY
     Dates: start: 20090716, end: 20090719

REACTIONS (3)
  - AGEUSIA [None]
  - ANOSMIA [None]
  - RHINALGIA [None]
